FAERS Safety Report 17491553 (Version 2)
Quarter: 2020Q2

REPORT INFORMATION
  Report Type: Report from Study
  Country: US (occurrence: US)
  Receive Date: 20200304
  Receipt Date: 20200414
  Transmission Date: 20200713
  Serious: Yes (Other)
  Sender: FDA-Public Use
  Company Number: US-ROCHE-2558384

PATIENT
  Sex: Male

DRUGS (1)
  1. ESBRIET [Suspect]
     Active Substance: PIRFENIDONE
     Indication: IDIOPATHIC PULMONARY FIBROSIS
     Dosage: ONE TABLET THREE TIMES A DAY;
     Route: 048

REACTIONS (9)
  - Diarrhoea [Unknown]
  - Dyspepsia [Unknown]
  - Hypoacusis [Unknown]
  - Somnolence [Unknown]
  - Abdominal discomfort [Unknown]
  - Pneumonia [Unknown]
  - Haemorrhage [Unknown]
  - Nausea [Unknown]
  - Fatigue [Unknown]
